FAERS Safety Report 4695792-0 (Version None)
Quarter: 2005Q2

REPORT INFORMATION
  Report Type: 
  Country: None (occurrence: None)
  Receive Date: 20050621
  Receipt Date: 20050614
  Transmission Date: 20051028
  Serious: Yes (Hospitalization)
  Sender: FDA-Public Use
  Company Number: US-JNJFOC-20050604553

PATIENT
  Sex: Female
  Weight: 79.38 kg

DRUGS (4)
  1. DURAGESIC-100 [Suspect]
     Route: 062
     Dates: start: 20040101
  2. VICODIN [Concomitant]
     Route: 049
  3. VICODIN [Concomitant]
     Indication: PAIN
     Dosage: EVERY 4-6 HOURS AS NECESSARY, ORAL
     Route: 049
  4. TAMOXIFEN [Concomitant]
     Indication: BREAST CANCER
     Dosage: DAILY, ORAL
     Route: 049

REACTIONS (8)
  - APPLICATION SITE BRUISING [None]
  - BREAST CANCER [None]
  - CARPAL TUNNEL SYNDROME [None]
  - CONSTIPATION [None]
  - DRUG INEFFECTIVE [None]
  - FAECALOMA [None]
  - FALL [None]
  - UPPER LIMB FRACTURE [None]
